FAERS Safety Report 21898026 (Version 2)
Quarter: 2023Q1

REPORT INFORMATION
  Report Type: Spontaneous
  Country: FR (occurrence: FR)
  Receive Date: 20230123
  Receipt Date: 20230217
  Transmission Date: 20230418
  Serious: Yes (Hospitalization, Other)
  Sender: FDA-Public Use
  Company Number: FR-BAYER-2023P004693

PATIENT
  Age: 52 Year
  Sex: Male

DRUGS (2)
  1. KOVALTRY [Suspect]
     Active Substance: ANTIHEMOPHILIC FACTOR, HUMAN RECOMBINANT
     Indication: Factor VIII deficiency
     Dosage: 30000 IU, Q1MON (PROPHYLAXIS)
     Route: 042
  2. KOVALTRY [Suspect]
     Active Substance: ANTIHEMOPHILIC FACTOR, HUMAN RECOMBINANT
     Indication: Factor VIII deficiency
     Dosage: UNK (AFTER THE ROAD ACCIDENT)
     Route: 042
     Dates: start: 202209, end: 202209

REACTIONS (2)
  - Road traffic accident [None]
  - Anti factor VIII antibody positive [None]

NARRATIVE: CASE EVENT DATE: 20220901
